FAERS Safety Report 8670164 (Version 3)
Quarter: 2012Q4

REPORT INFORMATION
  Report Type: 
  Country: US (occurrence: US)
  Receive Date: 20120718
  Receipt Date: 20120907
  Transmission Date: 20130627
  Serious: No
  Sender: FDA-Public Use
  Company Number: US-PFIZER INC-2012166415

PATIENT
  Age: 69 Year
  Sex: Male

DRUGS (1)
  1. ZYVOX [Suspect]
     Dosage: 600 mg

REACTIONS (4)
  - Vomiting [Unknown]
  - Chapped lips [Unknown]
  - Blister [Unknown]
  - Hot flush [Unknown]
